FAERS Safety Report 12225328 (Version 1)
Quarter: 2016Q1

REPORT INFORMATION
  Report Type: Spontaneous
  Country: US (occurrence: None)
  Receive Date: 20160330
  Receipt Date: 20160330
  Transmission Date: 20160526
  Serious: Yes (Disabling)
  Sender: FDA-Public Use
  Company Number: None

PATIENT
  Age: 86 Year
  Sex: Female
  Weight: 56.25 kg

DRUGS (7)
  1. AMLODIPINE BESYLATE QUALI [Suspect]
     Active Substance: AMLODIPINE BESYLATE
     Indication: HYPERTENSION
     Route: 048
     Dates: start: 20140301
  2. PRESERVISION VITAMINS [Concomitant]
  3. SIMVASTATIN. [Concomitant]
     Active Substance: SIMVASTATIN
  4. FUROSEMIDE. [Concomitant]
     Active Substance: FUROSEMIDE
  5. OMEPRAZOLE. [Concomitant]
     Active Substance: OMEPRAZOLE
  6. MULTIVITAMINS [Concomitant]
     Active Substance: VITAMINS
  7. MULTIPLE VITAMINS [Concomitant]
     Active Substance: VITAMINS

REACTIONS (5)
  - Rash [None]
  - Fall [None]
  - Dizziness [None]
  - Impaired quality of life [None]
  - Oedema peripheral [None]

NARRATIVE: CASE EVENT DATE: 20160329
